FAERS Safety Report 20881723 (Version 1)
Quarter: 2022Q2

REPORT INFORMATION
  Report Type: Spontaneous
  Country: HR (occurrence: HR)
  Receive Date: 20220527
  Receipt Date: 20220527
  Transmission Date: 20220720
  Serious: Yes (Other)
  Sender: FDA-Public Use
  Company Number: None

PATIENT
  Sex: Female

DRUGS (3)
  1. ARIPIPRAZOLE [Suspect]
     Active Substance: ARIPIPRAZOLE
     Dosage: UNIT DOSE: 180 MG, FREQUENCY TIME : 1 DAY, DURATION : 1 DAY
     Route: 048
     Dates: start: 20220420, end: 20220420
  2. PAROXETINE [Suspect]
     Active Substance: PAROXETINE
     Dosage: UNIT DOSE: 180 MG, FREQUENCY TIME : 1 DAY, DURATION : 1 DAY
     Route: 048
     Dates: start: 20220420, end: 20220420
  3. ALPRAZOLAM [Suspect]
     Active Substance: ALPRAZOLAM
     Dosage: UNIT: 2 MG, FREQUENCY TIME : 1 DAY, DURATION : 1 DAY
     Route: 048
     Dates: start: 20220420, end: 20220420

REACTIONS (3)
  - No adverse event [Unknown]
  - Suicide attempt [Unknown]
  - Intentional overdose [Unknown]

NARRATIVE: CASE EVENT DATE: 20220420
